FAERS Safety Report 8524820-7 (Version None)
Quarter: 2012Q3

REPORT INFORMATION
  Report Type: 
  Country: None (occurrence: None)
  Receive Date: 20120720
  Receipt Date: 20120716
  Transmission Date: 20120928
  Serious: Yes (Other)
  Sender: FDA-Public Use
  Company Number: GB-GLAXOSMITHKLINE-B0814992A

PATIENT
  Age: 30 Year
  Sex: Male

DRUGS (11)
  1. ATRACURIUM BESYLATE [Concomitant]
  2. GENTAMICIN [Concomitant]
  3. SEVOFLURANE [Concomitant]
  4. MIDAZOLAM [Concomitant]
  5. ACETAMINOPHEN [Concomitant]
  6. DEXAMETHASONE [Concomitant]
  7. PARECOXIB SODIUM [Concomitant]
  8. ZOFRAN [Suspect]
     Indication: PRODUCT USED FOR UNKNOWN INDICATION
     Dosage: 8MG SINGLE DOSE
     Route: 065
     Dates: start: 20120201, end: 20120201
  9. FENTANYL [Concomitant]
  10. PROPOFOL [Concomitant]
  11. BUPIVACAINE HCL [Concomitant]

REACTIONS (4)
  - APHASIA [None]
  - MUSCULOSKELETAL STIFFNESS [None]
  - MOVEMENT DISORDER [None]
  - IMMOBILE [None]
